FAERS Safety Report 10042618 (Version 2)
Quarter: 2014Q2

REPORT INFORMATION
  Report Type: Spontaneous
  Country: JP (occurrence: JP)
  Receive Date: 20140327
  Receipt Date: 20140423
  Transmission Date: 20141212
  Serious: Yes (Death, Other)
  Sender: FDA-Public Use
  Company Number: PHHY2014JP037149

PATIENT
  Sex: Female

DRUGS (5)
  1. ZOMETA [Suspect]
     Indication: HYPERCALCAEMIA
     Dosage: UNK UKN, UNK
  2. ZOMETA [Suspect]
     Dosage: 4MG (PER ADMINISTRATION)
     Route: 041
     Dates: start: 20140318
  3. ZOMETA [Suspect]
     Dosage: 4MG (PER ADMINISTRATION)
     Route: 041
     Dates: start: 20140319
  4. ZOMETA [Suspect]
     Dosage: 4MG (PER ADMINISTRATION)
     Route: 041
     Dates: start: 20140320
  5. ZOMETA [Suspect]
     Dosage: 4MG (PER ADMINISTRATION)
     Route: 041
     Dates: start: 20140321

REACTIONS (5)
  - Breast cancer [Fatal]
  - Malignant neoplasm progression [Fatal]
  - Glomerular filtration rate decreased [Unknown]
  - Inappropriate schedule of drug administration [Unknown]
  - Overdose [Unknown]
